FAERS Safety Report 5023132-6 (Version None)
Quarter: 2006Q2

REPORT INFORMATION
  Report Type: 
  Country: None (occurrence: None)
  Receive Date: 20060607
  Receipt Date: 20060607
  Transmission Date: 20061013
  Serious: Yes (Other)
  Sender: FDA-Public Use
  Company Number: None

PATIENT
  Age: 45 Year
  Sex: Female
  Weight: 100.2449 kg

DRUGS (2)
  1. CYMBALTA [Suspect]
     Indication: DEPRESSION
     Dosage: 30 MG PO BID
     Route: 048
     Dates: start: 20050101
  2. OXYBUTYNIN 10 MG [DITROPAN] [Suspect]
     Indication: POLLAKIURIA
     Dosage: 10 MG PO DAILY
     Route: 048
     Dates: start: 20060401

REACTIONS (2)
  - DYSURIA [None]
  - URINARY HESITATION [None]
